FAERS Safety Report 5389391-5 (Version None)
Quarter: 2007Q3

REPORT INFORMATION
  Report Type: 
  Country: None (occurrence: None)
  Receive Date: 20070717
  Receipt Date: 20070704
  Transmission Date: 20080115
  Serious: Yes (Other)
  Sender: FDA-Public Use
  Company Number: IE-ROCHE-505861

PATIENT
  Age: 46 Year
  Sex: Male

DRUGS (2)
  1. COPEGUS [Suspect]
     Indication: HEPATITIS C
     Route: 048
     Dates: start: 20070416
  2. PEGASYS [Suspect]
     Indication: HEPATITIS C
     Route: 058
     Dates: start: 20070416

REACTIONS (3)
  - DYSPHONIA [None]
  - PHARYNGOLARYNGEAL PAIN [None]
  - SALIVARY GLAND ADENOMA [None]
